FAERS Safety Report 8065713-1 (Version None)
Quarter: 2012Q1

REPORT INFORMATION
  Report Type: 
  Country: None (occurrence: None)
  Receive Date: 20120117
  Receipt Date: 20120111
  Transmission Date: 20120608
  Serious: Yes (Other)
  Sender: FDA-Public Use
  Company Number: 2012MA000598

PATIENT
  Age: 36 Year

DRUGS (2)
  1. MINOXIDIL [Suspect]
     Dosage: 1 GM;PO
     Route: 048
  2. ALCOHOL [Concomitant]

REACTIONS (3)
  - HYPOTENSION [None]
  - TACHYCARDIA [None]
  - COMA [None]
